FAERS Safety Report 20631267 (Version 1)
Quarter: 2022Q1

REPORT INFORMATION
  Report Type: Spontaneous
  Country: US (occurrence: None)
  Receive Date: 20220323
  Receipt Date: 20220323
  Transmission Date: 20220423
  Serious: Yes (Hospitalization)
  Sender: FDA-Public Use
  Company Number: None

PATIENT
  Age: 50 Year
  Sex: Female

DRUGS (1)
  1. NUCALA [Suspect]
     Active Substance: MEPOLIZUMAB
     Indication: Asthma
     Dosage: OTHER FREQUENCY : EVERY 28 DAYS;?
     Route: 058
     Dates: start: 201908

REACTIONS (5)
  - Asthma [None]
  - Coagulopathy [None]
  - Pulmonary pain [None]
  - Spinal pain [None]
  - Oxygen saturation decreased [None]

NARRATIVE: CASE EVENT DATE: 20211201
